FAERS Safety Report 4627350-8 (Version None)
Quarter: 2005Q1

REPORT INFORMATION
  Report Type: 
  Country: None (occurrence: None)
  Receive Date: 20050331
  Receipt Date: 20050322
  Transmission Date: 20050727
  Serious: Yes (Death, Other)
  Sender: FDA-Public Use
  Company Number: 20040058USST

PATIENT
  Age: 42 Year
  Sex: Female

DRUGS (19)
  1. CARNITINE         (L-CARNITINA) (LEVOCARNITINE) [Suspect]
     Dosage: 2 G. IV
     Route: 042
     Dates: start: 20041119
  2. LANSOX (LANSOPRAZOLE) [Suspect]
     Indication: GASTRIC DISORDER
     Dosage: 30 MG/DAY PO
     Route: 048
     Dates: start: 20041120, end: 20041121
  3. LANSOX (LANSOPRAZOLE) [Suspect]
     Indication: GASTRIC HAEMORRHAGE
     Dosage: 30 MG/DAY PO
     Route: 048
     Dates: start: 20041120, end: 20041121
  4. MEPRAL [Concomitant]
  5. ALUMINUM HYDROXIDE AND MAGNESIUM TRISILICATE [Concomitant]
  6. EUTIROX [Concomitant]
  7. SUCRALFIN [Concomitant]
  8. NEBILOX [Concomitant]
  9. MYCOSTATIN [Concomitant]
  10. TINSET [Concomitant]
  11. PROFFERALGAN [Concomitant]
  12. SOLU-MEDROL [Concomitant]
  13. ZANTAC [Concomitant]
  14. TPN [Concomitant]
  15. KIBEMIN [Concomitant]
  16. ROCEPHIN [Concomitant]
  17. EPREX 6000 [Concomitant]
  18. CALCIJEX [Concomitant]
  19. IDRIPLURIVIUTT [Concomitant]

REACTIONS (18)
  - ANTITHROMBIN III DECREASED [None]
  - ANURIA [None]
  - ASTHENIA [None]
  - BLOOD CHOLINESTERASE DECREASED [None]
  - BLOOD PRESSURE INCREASED [None]
  - CARDIAC ARREST [None]
  - CONFUSIONAL STATE [None]
  - HAEMOGLOBIN DECREASED [None]
  - HYPERPYREXIA [None]
  - MULTI-ORGAN DISORDER [None]
  - NEUTROPHILIA [None]
  - PAIN [None]
  - PLATELET AGGREGATION INCREASED [None]
  - PLEURAL EFFUSION [None]
  - RENAL FAILURE [None]
  - STEVENS-JOHNSON SYNDROME [None]
  - TOXIC EPIDERMAL NECROLYSIS [None]
  - TRANSAMINASES INCREASED [None]
